FAERS Safety Report 5523184-0 (Version None)
Quarter: 2007Q4

REPORT INFORMATION
  Report Type: 
  Country: None (occurrence: None)
  Receive Date: 20071121
  Receipt Date: 20071109
  Transmission Date: 20080405
  Serious: Yes (Death, Hospitalization, Other)
  Sender: FDA-Public Use
  Company Number: HQWYE627913JAN05

PATIENT
  Sex: Female
  Weight: 80.81 kg

DRUGS (7)
  1. PREMPRO [Suspect]
     Dosage: UNKNOWN
     Route: 048
     Dates: start: 19991101, end: 20020701
  2. PRAVACHOL [Concomitant]
  3. CYCRIN [Suspect]
  4. SYNTHROID [Concomitant]
  5. PREMARIN [Suspect]
  6. MULTI-VITAMINS [Concomitant]
  7. LISINOPRIL [Concomitant]

REACTIONS (2)
  - BREAST CANCER METASTATIC [None]
  - DEEP VEIN THROMBOSIS [None]
